FAERS Safety Report 8193372-6 (Version None)
Quarter: 2012Q1

REPORT INFORMATION
  Report Type: 
  Country: None (occurrence: None)
  Receive Date: 20120308
  Receipt Date: 20120301
  Transmission Date: 20120608
  Serious: Yes (Hospitalization, Other)
  Sender: FDA-Public Use
  Company Number: JP-ABBOTT-10P-087-0643947-00

PATIENT
  Sex: Female
  Weight: 57.3 kg

DRUGS (12)
  1. PREDNISOLONE [Suspect]
     Indication: RHEUMATOID ARTHRITIS
     Route: 048
     Dates: start: 20090402, end: 20090513
  2. PREDNISOLONE [Suspect]
     Route: 048
     Dates: start: 20090709, end: 20091014
  3. LOXOPROFEN SODIUM HYDRATE [Concomitant]
     Indication: RHEUMATOID ARTHRITIS
     Route: 048
     Dates: end: 20090415
  4. LOXOPROFEN SODIUM HYDRATE [Concomitant]
     Dates: start: 20090514, end: 20090708
  5. ADALIMUMAB [Suspect]
     Indication: RHEUMATOID ARTHRITIS
     Route: 058
     Dates: start: 20090402, end: 20100404
  6. PREDNISOLONE [Suspect]
     Route: 048
     Dates: start: 20090514, end: 20090708
  7. METHOTREXATE [Suspect]
     Dates: start: 20091126
  8. METHOTREXATE [Suspect]
     Indication: RHEUMATOID ARTHRITIS
     Route: 048
     Dates: start: 20090402, end: 20091125
  9. FOLIC ACID [Concomitant]
     Indication: FOLATE DEFICIENCY
     Route: 048
  10. METHOTREXATE [Suspect]
     Dates: start: 20070101
  11. METHOTREXATE [Suspect]
  12. LOXOPROFEN SODIUM HYDRATE [Concomitant]
     Dosage: 1 IN 1 DAY AS NEEDED FOR PAIN
     Dates: start: 20090903, end: 20091014

REACTIONS (3)
  - PROTEIN URINE PRESENT [None]
  - DISSEMINATED TUBERCULOSIS [None]
  - UROBILINOGEN URINE INCREASED [None]
